FAERS Safety Report 7534518-X (Version None)
Quarter: 2011Q2

REPORT INFORMATION
  Report Type: 
  Country: None (occurrence: None)
  Receive Date: 20110609
  Receipt Date: 20090605
  Transmission Date: 20111010
  Serious: Yes (Hospitalization)
  Sender: FDA-Public Use
  Company Number: PHHY2009JP03095

PATIENT
  Sex: Male

DRUGS (5)
  1. PELTAZON [Concomitant]
     Dosage: 2 DF
     Route: 048
     Dates: start: 20080623, end: 20080822
  2. MUCOSTA [Concomitant]
     Dosage: 3 DF
     Route: 048
     Dates: start: 20070918, end: 20080822
  3. AMITRIPTYLINE HCL [Concomitant]
     Dosage: 1 DF
     Route: 048
     Dates: start: 20080609, end: 20080822
  4. ZOLEDRONIC ACID [Suspect]
     Indication: CARCINOID TUMOUR
     Dosage: 4 MG, QMO
     Route: 042
     Dates: start: 20070918, end: 20080707
  5. LOXONIN [Concomitant]
     Dosage: 3 DF
     Route: 048
     Dates: start: 20070918, end: 20080822

REACTIONS (4)
  - BACK PAIN [None]
  - CONDITION AGGRAVATED [None]
  - ILEUS [None]
  - CARCINOID TUMOUR [None]
